FAERS Safety Report 5760399-0 (Version None)
Quarter: 2008Q2

REPORT INFORMATION
  Report Type: 
  Country: None (occurrence: None)
  Receive Date: 20080605
  Receipt Date: 20080526
  Transmission Date: 20081010
  Serious: Yes (Life-Threatening, Other)
  Sender: FDA-Public Use
  Company Number: JP-PFIZER INC-2008037072

PATIENT
  Sex: Male

DRUGS (5)
  1. VFEND [Suspect]
     Route: 048
     Dates: start: 20070108, end: 20080424
  2. VASOLAN [Suspect]
     Route: 048
     Dates: start: 20071222, end: 20080512
  3. FINIBAX [Suspect]
     Route: 042
     Dates: start: 20080412, end: 20080422
  4. SULFAMETHOXAZOLE AND TRIMETHOPRIM [Concomitant]
     Route: 048
  5. LANSOPRAZOLE [Concomitant]
     Route: 048

REACTIONS (2)
  - SKIN EROSION [None]
  - SKIN EXFOLIATION [None]
